FAERS Safety Report 23084789 (Version 8)
Quarter: 2024Q2

REPORT INFORMATION
  Report Type: Spontaneous
  Country: IN (occurrence: IN)
  Receive Date: 20231019
  Receipt Date: 20240626
  Transmission Date: 20240715
  Serious: Yes (Other)
  Sender: FDA-Public Use
  Company Number: IN-PFIZER INC-PV202300171785

PATIENT
  Age: 54 Year
  Sex: Male

DRUGS (1)
  1. LORLATINIB [Suspect]
     Active Substance: LORLATINIB
     Indication: Lung neoplasm malignant
     Dosage: DAILY ONCE
     Route: 048
     Dates: start: 20231006

REACTIONS (24)
  - Seizure [Unknown]
  - Insomnia [Recovering/Resolving]
  - Somnolence [Unknown]
  - Vertigo [Unknown]
  - Paraesthesia [Not Recovered/Not Resolved]
  - Stress [Unknown]
  - Back pain [Unknown]
  - Chest pain [Recovering/Resolving]
  - Headache [Recovering/Resolving]
  - Dizziness [Not Recovered/Not Resolved]
  - Head discomfort [Not Recovered/Not Resolved]
  - Dyspnoea exertional [Not Recovered/Not Resolved]
  - Chest discomfort [Not Recovered/Not Resolved]
  - Weight decreased [Recovering/Resolving]
  - Hypertension [Not Recovered/Not Resolved]
  - Sleep disorder [Recovering/Resolving]
  - Fatigue [Unknown]
  - Pain in extremity [Unknown]
  - Mental disorder [Unknown]
  - Haemoglobin decreased [Unknown]
  - Swelling face [Unknown]
  - Peripheral swelling [Unknown]
  - Fall [Unknown]
  - Feeling cold [Unknown]

NARRATIVE: CASE EVENT DATE: 20231001
